FAERS Safety Report 5293746-7 (Version None)
Quarter: 2007Q1

REPORT INFORMATION
  Report Type: 
  Country: None (occurrence: None)
  Receive Date: 20070116
  Receipt Date: 20060606
  Transmission Date: 20070707
  Serious: Yes (Other)
  Sender: FDA-Public Use
  Company Number: HQWYE465214APR04

PATIENT
  Age: 65 Year
  Sex: Female
  Weight: 64.47 kg

DRUGS (6)
  1. PREMPRO [Suspect]
     Indication: HORMONE REPLACEMENT THERAPY
     Dosage: 0.625/2.5 MG DAILY, ORAL
     Route: 048
     Dates: start: 19970417, end: 20020405
  2. PREMPRO [Suspect]
     Indication: MENOPAUSAL SYMPTOMS
     Dosage: 0.625/2.5 MG DAILY, ORAL
     Route: 048
     Dates: start: 19970417, end: 20020405
  3. CYCRIN [Suspect]
     Dosage: ORAL
     Route: 048
     Dates: end: 19970401
  4. PREMARIN [Suspect]
     Indication: MENOPAUSE
     Dosage: 0.625 MG, ORAL
     Route: 048
     Dates: start: 19890101, end: 19970417
  5. PROVERA [Suspect]
     Indication: MENOPAUSE
     Dosage: RANGED BETWEEN 5 MG AND 10 MG FOR DAYS 1-10 OF EACH MONTH , ORAL
     Route: 048
     Dates: start: 19890101, end: 19970417
  6. PHENOBARBITAL TAB [Concomitant]

REACTIONS (1)
  - BREAST CANCER [None]
